FAERS Safety Report 12877505 (Version 5)
Quarter: 2018Q4

REPORT INFORMATION
  Report Type: Spontaneous
  Country: JP (occurrence: JP)
  Receive Date: 20161024
  Receipt Date: 20181109
  Transmission Date: 20190204
  Serious: Yes (Other)
  Sender: FDA-Public Use
  Company Number: JP-PFIZER INC-2016030845

PATIENT
  Age: 8 Decade
  Sex: Male

DRUGS (6)
  1. 5-FU [Suspect]
     Active Substance: FLUOROURACIL
     Dosage: 560 MG/M2, UNK
  2. ADRIAMYCIN [Concomitant]
     Active Substance: DOXORUBICIN HYDROCHLORIDE
     Indication: OESOPHAGEAL CARCINOMA
     Dosage: 27 MG/M2, UNK
  3. NEDAPLATIN [Concomitant]
     Active Substance: NEDAPLATIN
     Indication: OESOPHAGEAL CARCINOMA
     Dosage: 60 MG/M2, UNK
  4. CISPLATIN. [Suspect]
     Active Substance: CISPLATIN
     Indication: OESOPHAGEAL CANCER METASTATIC
     Dosage: 70 MG/M2, UNK
  5. DOCETAXEL. [Suspect]
     Active Substance: DOCETAXEL
     Indication: OESOPHAGEAL CANCER METASTATIC
     Dosage: 70 MG/M2, UNK
     Route: 041
  6. 5-FU [Suspect]
     Active Substance: FLUOROURACIL
     Indication: OESOPHAGEAL CANCER METASTATIC
     Dosage: 700 MG/M2, UNK
     Route: 042

REACTIONS (3)
  - Diarrhoea [Unknown]
  - Renal impairment [Unknown]
  - Bone marrow failure [Unknown]
